FAERS Safety Report 16611682 (Version 1)
Quarter: 2019Q3

REPORT INFORMATION
  Report Type: Report from Study
  Country: GB (occurrence: GB)
  Receive Date: 20190722
  Receipt Date: 20190722
  Transmission Date: 20191004
  Serious: Yes (Other)
  Sender: FDA-Public Use
  Company Number: GB-MYLANLABS-2019M1067368

PATIENT
  Age: 52 Year
  Sex: Female

DRUGS (1)
  1. TRAMADOL. [Suspect]
     Active Substance: TRAMADOL
     Indication: BACK PAIN
     Dosage: UNK

REACTIONS (5)
  - Drug ineffective [Unknown]
  - Dizziness [Unknown]
  - Drug dependence [Unknown]
  - Malaise [Unknown]
  - Constipation [Unknown]
